FAERS Safety Report 7271086 (Version 4)
Quarter: 2014Q2

REPORT INFORMATION
  Report Type: Spontaneous
  Country: US (occurrence: US)
  Receive Date: 20100204
  Receipt Date: 20140529
  Transmission Date: 20141212
  Serious: Yes (Other)
  Sender: FDA-Public Use
  Company Number: US-JNJFOC-20070200867

PATIENT
  Sex: Male

DRUGS (3)
  1. RISPERDAL [Suspect]
     Indication: SCHIZOPHRENIA
     Route: 065
  2. SEROQUEL [Suspect]
     Indication: SCHIZOPHRENIA
     Route: 065
  3. ZYPREXA [Suspect]
     Indication: SCHIZOPHRENIA
     Route: 065

REACTIONS (2)
  - Tardive dyskinesia [Unknown]
  - Type 2 diabetes mellitus [Recovering/Resolving]
